FAERS Safety Report 6040252-8 (Version None)
Quarter: 2009Q1

REPORT INFORMATION
  Report Type: 
  Country: None (occurrence: None)
  Receive Date: 20090116
  Receipt Date: 20080313
  Transmission Date: 20090719
  Serious: Yes (Disabling)
  Sender: FDA-Public Use
  Company Number: US-BRISTOL-MYERS SQUIBB COMPANY-14055958

PATIENT
  Age: 53 Year
  Sex: Female

DRUGS (8)
  1. ABILIFY [Suspect]
     Indication: BIPOLAR DISORDER
     Route: 048
  2. PHENTERMINE [Suspect]
  3. LAMICTAL [Suspect]
     Route: 048
  4. KLONOPIN [Concomitant]
  5. SYNTHROID [Concomitant]
  6. GLYSET [Concomitant]
  7. METFORMIN HCL [Concomitant]
  8. TOPAMAX [Concomitant]

REACTIONS (1)
  - BLEPHAROSPASM [None]
